FAERS Safety Report 14820922 (Version 1)
Quarter: 2018Q2

REPORT INFORMATION
  Report Type: Spontaneous
  Country: TW (occurrence: TW)
  Receive Date: 20180427
  Receipt Date: 20180427
  Transmission Date: 20180711
  Serious: Yes (Other)
  Sender: FDA-Public Use
  Company Number: TW-ELI_LILLY_AND_COMPANY-TW201804010937

PATIENT
  Age: 92 Year
  Sex: Female

DRUGS (1)
  1. FORTEO [Suspect]
     Active Substance: TERIPARATIDE
     Indication: PRODUCT USED FOR UNKNOWN INDICATION
     Dosage: UNK, UNKNOWN
     Route: 058

REACTIONS (5)
  - Blood alkaline phosphatase decreased [Unknown]
  - Laboratory test abnormal [Unknown]
  - Osteocalcin decreased [Unknown]
  - Blood parathyroid hormone increased [Unknown]
  - Serum procollagen type I N-terminal propeptide increased [Unknown]
